FAERS Safety Report 8023565-X (Version None)
Quarter: 2012Q1

REPORT INFORMATION
  Report Type: 
  Country: None (occurrence: None)
  Receive Date: 20120105
  Receipt Date: 20090224
  Transmission Date: 20120608
  Serious: No
  Sender: FDA-Public Use
  Company Number: 2009BI006072

PATIENT
  Age: 57 Year
  Sex: Female

DRUGS (1)
  1. TYSABRI [Suspect]
     Indication: MULTIPLE SCLEROSIS
     Route: 042
     Dates: start: 20081124

REACTIONS (5)
  - FATIGUE [None]
  - SOMNOLENCE [None]
  - GAIT DISTURBANCE [None]
  - MUSCLE TIGHTNESS [None]
  - HEADACHE [None]
